FAERS Safety Report 24318581 (Version 3)
Quarter: 2024Q4

REPORT INFORMATION
  Report Type: Report from Study
  Country: US (occurrence: US)
  Receive Date: 20240913
  Receipt Date: 20241209
  Transmission Date: 20250115
  Serious: Yes (Other)
  Sender: MYLAN
  Company Number: US-MYLANLABS-2024M1070973

PATIENT
  Age: 65 Year
  Sex: Female
  Weight: 63.5 kg

DRUGS (3)
  1. TYRVAYA [Suspect]
     Active Substance: VARENICLINE TARTRATE
     Indication: Dry eye
     Dosage: 0.03 MILLIGRAM
     Route: 045
     Dates: start: 202303
  2. TYRVAYA [Suspect]
     Active Substance: VARENICLINE TARTRATE
     Dosage: 0.03 MILLIGRAM, BID (EACH SPRAY ONE NOSTRIL).
     Route: 045
     Dates: start: 202403, end: 20240717
  3. SYNTHROID [Concomitant]
     Active Substance: LEVOTHYROXINE SODIUM
     Indication: Autoimmune thyroiditis
     Dosage: UNK (6 DAYS A WEEK)
     Route: 065

REACTIONS (9)
  - Nasal abscess [Recovered/Resolved]
  - Epistaxis [Recovered/Resolved]
  - Nasal dryness [Recovered/Resolved]
  - Nasal inflammation [Recovered/Resolved]
  - Nasal mucosal blistering [Recovering/Resolving]
  - Rhinalgia [Recovered/Resolved]
  - Nasal crusting [Recovered/Resolved]
  - Hypersensitivity [Recovered/Resolved]
  - Rhinitis [Recovered/Resolved]

NARRATIVE: CASE EVENT DATE: 20230701
